FAERS Safety Report 5260705-X (Version None)
Quarter: 2007Q1

REPORT INFORMATION
  Report Type: 
  Country: None (occurrence: None)
  Receive Date: 20070309
  Receipt Date: 20070122
  Transmission Date: 20070707
  Serious: No
  Sender: FDA-Public Use
  Company Number: US-GLAXOSMITHKLINE-A0634057A

PATIENT
  Age: 50 Year
  Sex: Male

DRUGS (5)
  1. NICORETTE (MINT) [Suspect]
     Dosage: 2MG SINGLE DOSE
     Dates: start: 20061001, end: 20061001
  2. NICODERM CQ [Suspect]
     Dosage: 21MG SINGLE DOSE
  3. ABILIFY [Suspect]
  4. NEURONTIN [Suspect]
  5. PAXIL [Concomitant]

REACTIONS (4)
  - MALAISE [None]
  - PALPITATIONS [None]
  - SEDATION [None]
  - SOMNOLENCE [None]
